FAERS Safety Report 18867884 (Version 1)
Quarter: 2021Q1

REPORT INFORMATION
  Report Type: Spontaneous
  Country: BR (occurrence: BR)
  Receive Date: 20210209
  Receipt Date: 20210209
  Transmission Date: 20210420
  Serious: Yes (Hospitalization)
  Sender: FDA-Public Use
  Company Number: BR-BAYER-2021-044964

PATIENT
  Sex: Female

DRUGS (19)
  1. MORPHINE [Concomitant]
     Active Substance: MORPHINE
     Indication: SPINAL PAIN
     Dosage: 30 MG, QID
     Dates: start: 2009
  2. CALCITRIOL. [Concomitant]
     Active Substance: CALCITRIOL
     Indication: MINERAL SUPPLEMENTATION
     Dosage: 3.25 NG, TID
     Dates: start: 2018
  3. LEVOTHYROXINE. [Concomitant]
     Active Substance: LEVOTHYROXINE
     Indication: HYPOTHYROIDISM
     Dosage: UNK
     Dates: start: 2007
  4. PARACETAMOL [Concomitant]
     Active Substance: ACETAMINOPHEN
     Indication: SPINAL PAIN
     Dosage: 500 MG, TID
     Dates: start: 2009
  5. CALCIUM CARBONATE. [Concomitant]
     Active Substance: CALCIUM CARBONATE
     Indication: MINERAL SUPPLEMENTATION
     Dosage: 500 MG, TID
     Dates: start: 2018
  6. COLECALCIFEROL [Concomitant]
     Active Substance: CHOLECALCIFEROL
     Indication: MINERAL SUPPLEMENTATION
     Dosage: 2 DF, BIW
     Dates: start: 2018
  7. DIPIRONA [METAMIZOLE SODIUM] [Concomitant]
     Indication: SPINAL PAIN
     Dosage: 500 MG, TID
     Dates: start: 2009
  8. CLONAZEPAM. [Concomitant]
     Active Substance: CLONAZEPAM
     Indication: INSOMNIA
     Dosage: 2 MG, QD
     Dates: start: 2009
  9. AMITRIPTYLINE [Concomitant]
     Active Substance: AMITRIPTYLINE
     Indication: INSOMNIA
     Dosage: 35 MG, TID
     Dates: start: 2020
  10. PRIMOGYNA 1 MG [Concomitant]
     Indication: HORMONE REPLACEMENT THERAPY
  11. PRIMOGYNA 1 MG [Concomitant]
     Indication: MENOPAUSE
     Dosage: 1 MG, QD
     Dates: start: 20210125
  12. NEXAVAR [Suspect]
     Active Substance: SORAFENIB
     Indication: HEPATIC CANCER
     Dosage: 600 MG, QD
     Dates: start: 2020
  13. NEXAVAR [Suspect]
     Active Substance: SORAFENIB
     Indication: HEPATIC CANCER
     Dosage: 600 MG, QD
     Dates: start: 201204
  14. NEXAVAR [Suspect]
     Active Substance: SORAFENIB
     Indication: LUNG NEOPLASM MALIGNANT
     Dosage: 800 MG, QD
     Dates: start: 2020, end: 2020
  15. MORPHINE [Concomitant]
     Active Substance: MORPHINE
     Indication: PAIN IN EXTREMITY
  16. PARACETAMOL [Concomitant]
     Active Substance: ACETAMINOPHEN
     Indication: PAIN IN EXTREMITY
  17. DIPIRONA [METAMIZOLE SODIUM] [Concomitant]
     Indication: PAIN IN EXTREMITY
  18. BISACODIL [Concomitant]
     Indication: LAXATIVE SUPPORTIVE CARE
     Dosage: 5 MG, BID
     Dates: start: 2009
  19. ATORVASTATIN [Concomitant]
     Active Substance: ATORVASTATIN
     Indication: BLOOD CHOLESTEROL ABNORMAL
     Dosage: 10 MG, QD
     Dates: start: 2016

REACTIONS (9)
  - Hypertension [Not Recovered/Not Resolved]
  - Glucose tolerance impaired [Not Recovered/Not Resolved]
  - Mouth injury [Not Recovered/Not Resolved]
  - Vomiting [Not Recovered/Not Resolved]
  - Nausea [Not Recovered/Not Resolved]
  - Intervertebral disc protrusion [Not Recovered/Not Resolved]
  - Blister [Not Recovered/Not Resolved]
  - Blood potassium increased [Recovered/Resolved]
  - Off label use [None]

NARRATIVE: CASE EVENT DATE: 2012
